FAERS Safety Report 5166708-8 (Version None)
Quarter: 2006Q4

REPORT INFORMATION
  Report Type: 
  Country: None (occurrence: None)
  Receive Date: 20061207
  Receipt Date: 20060720
  Transmission Date: 20070319
  Serious: Yes (Life-Threatening, Hospitalization)
  Sender: FDA-Public Use
  Company Number: JP-BRISTOL-MYERS SQUIBB COMPANY-13449210

PATIENT
  Age: 77 Year
  Sex: Male

DRUGS (14)
  1. VEPESID [Suspect]
     Indication: LYMPHOMA
     Route: 041
     Dates: start: 20050805, end: 20050806
  2. CISPLATIN MARUKO [Suspect]
     Indication: LYMPHOMA
     Route: 041
     Dates: start: 20050805, end: 20050806
  3. MEYLON [Concomitant]
     Route: 041
     Dates: start: 20050805, end: 20050809
  4. KYTRIL [Concomitant]
     Route: 041
     Dates: start: 20050805, end: 20050806
  5. LASIX [Concomitant]
     Route: 041
     Dates: start: 20050806, end: 20050809
  6. RITUXAN [Concomitant]
     Route: 041
     Dates: start: 20050810
  7. PREDOPA [Concomitant]
     Route: 041
     Dates: start: 20050816, end: 20050820
  8. PRIMPERAN TAB [Concomitant]
     Route: 041
     Dates: start: 20050816, end: 20060816
  9. GRAN [Concomitant]
     Route: 058
     Dates: start: 20050816, end: 20050822
  10. OPSO [Concomitant]
     Route: 048
     Dates: start: 20050803
  11. ALLOPURINOL [Concomitant]
     Route: 048
     Dates: start: 20050804
  12. CALONAL [Concomitant]
     Route: 048
     Dates: start: 20050810
  13. POLARAMINE [Concomitant]
     Route: 048
     Dates: start: 20050810
  14. MAGNESIUM OXIDE [Concomitant]
     Route: 048
     Dates: start: 20050804

REACTIONS (2)
  - GASTROINTESTINAL HAEMORRHAGE [None]
  - HAEMOGLOBIN DECREASED [None]
